FAERS Safety Report 7290728-0 (Version None)
Quarter: 2011Q1

REPORT INFORMATION
  Report Type: 
  Country: None (occurrence: None)
  Receive Date: 20110214
  Receipt Date: 20110131
  Transmission Date: 20110831
  Serious: Yes (Other)
  Sender: FDA-Public Use
  Company Number: US-ROCHE-748318

PATIENT
  Sex: Female
  Weight: 63.5 kg

DRUGS (1)
  1. ACCUTANE [Suspect]
     Indication: ACNE
     Route: 065
     Dates: start: 19990101

REACTIONS (5)
  - INFLAMMATORY BOWEL DISEASE [None]
  - ERYTHEMA NODOSUM [None]
  - SMALL INTESTINAL STENOSIS [None]
  - CROHN'S DISEASE [None]
  - DEPRESSION [None]
